FAERS Safety Report 11217933 (Version 5)
Quarter: 2016Q2

REPORT INFORMATION
  Report Type: Spontaneous
  Country: CA (occurrence: CA)
  Receive Date: 20150625
  Receipt Date: 20160530
  Transmission Date: 20160815
  Serious: Yes (Other)
  Sender: FDA-Public Use
  Company Number: CA-ROCHE-1596740

PATIENT
  Age: 54 Year
  Sex: Female

DRUGS (17)
  1. XOLAIR [Suspect]
     Active Substance: OMALIZUMAB
     Route: 058
     Dates: start: 20121015
  2. AMERGE [Concomitant]
     Active Substance: NARATRIPTAN HYDROCHLORIDE
  3. ALENDRONATE [Concomitant]
     Active Substance: ALENDRONATE SODIUM
  4. XOLAIR [Suspect]
     Active Substance: OMALIZUMAB
     Route: 058
     Dates: start: 20160519
  5. XOLAIR [Suspect]
     Active Substance: OMALIZUMAB
     Route: 058
     Dates: start: 20160329
  6. ALVESCO [Concomitant]
     Active Substance: CICLESONIDE
  7. AMITRIPTYLINE [Concomitant]
     Active Substance: AMITRIPTYLINE
  8. XOLAIR [Suspect]
     Active Substance: OMALIZUMAB
     Route: 058
     Dates: start: 20130124
  9. ERGOCALCIFEROL. [Concomitant]
     Active Substance: ERGOCALCIFEROL
  10. HYDROCHLOROTHIAZIDE. [Concomitant]
     Active Substance: HYDROCHLOROTHIAZIDE
  11. COVERSYL [Concomitant]
     Active Substance: PERINDOPRIL
  12. NASONEX [Concomitant]
     Active Substance: MOMETASONE FUROATE
  13. XOLAIR [Suspect]
     Active Substance: OMALIZUMAB
     Indication: ASTHMA
     Route: 058
     Dates: start: 20100208
  14. XOLAIR [Suspect]
     Active Substance: OMALIZUMAB
     Dosage: MOST RECENT DOSE RECEIVED ON 29/MAR/2016
     Route: 058
     Dates: start: 20130514
  15. ADVAIR HFA [Concomitant]
     Active Substance: FLUTICASONE PROPIONATE\SALMETEROL XINAFOATE
  16. SALBUTAMOL [Concomitant]
     Active Substance: ALBUTEROL
  17. LORATADIN [Concomitant]
     Active Substance: LORATADINE

REACTIONS (21)
  - Drug ineffective [Unknown]
  - Feeling abnormal [Unknown]
  - Gastroenteritis viral [Unknown]
  - Cough [Unknown]
  - Parosmia [Unknown]
  - Dyspnoea [Unknown]
  - Lung infection [Unknown]
  - Anxiety [Unknown]
  - Sinusitis [Unknown]
  - Wheezing [Unknown]
  - Headache [Not Recovered/Not Resolved]
  - Asthma [Not Recovered/Not Resolved]
  - Sinus headache [Unknown]
  - Perfume sensitivity [Not Recovered/Not Resolved]
  - Upper respiratory tract congestion [Unknown]
  - Fatigue [Unknown]
  - Nasopharyngitis [Not Recovered/Not Resolved]
  - Blood pressure increased [Unknown]
  - Lower respiratory tract congestion [Unknown]
  - Allergy to chemicals [Unknown]
  - Abdominal discomfort [Not Recovered/Not Resolved]

NARRATIVE: CASE EVENT DATE: 20100208
